FAERS Safety Report 24375932 (Version 1)
Quarter: 2024Q3

REPORT INFORMATION
  Report Type: Other
  Country: CA (occurrence: CA)
  Receive Date: 20240928
  Receipt Date: 20240928
  Transmission Date: 20241016
  Serious: Yes (Death, Other)
  Sender: KNIGHT THERAPEUTICS
  Company Number: CA-Knight Therapeutics (USA) Inc.-2162156

PATIENT
  Age: 74 Year
  Sex: Female

DRUGS (6)
  1. IMPAVIDO [Suspect]
     Active Substance: MILTEFOSINE
     Indication: Encephalitis
  2. PENTAMIDINE ISETHIONATE [Suspect]
     Active Substance: PENTAMIDINE ISETHIONATE
  3. AZITHROMYCIN [Suspect]
     Active Substance: AZITHROMYCIN
  4. FLUCONAZOLE [Suspect]
     Active Substance: FLUCONAZOLE
  5. FLUCYTOSINE [Suspect]
     Active Substance: FLUCYTOSINE
  6. SULFAMETHOXAZOLE\TRIMETHOPRIM [Suspect]
     Active Substance: SULFAMETHOXAZOLE\TRIMETHOPRIM

REACTIONS (3)
  - Encephalitis [Fatal]
  - Product use in unapproved indication [Not Recovered/Not Resolved]
  - Palliative care [Unknown]
